FAERS Safety Report 15083682 (Version 3)
Quarter: 2019Q3

REPORT INFORMATION
  Report Type: Report from Study
  Country: US (occurrence: US)
  Receive Date: 20180628
  Receipt Date: 20190930
  Transmission Date: 20191004
  Serious: No
  Sender: FDA-Public Use
  Company Number: US-CLOVIS ONCOLOGY-CLO-2018-000500

PATIENT
  Age: 61 Year
  Sex: Female

DRUGS (8)
  1. RUBRACA [Suspect]
     Active Substance: RUCAPARIB CAMSYLATE
     Dosage: 300 MG, BID
     Route: 048
     Dates: start: 20180424, end: 20180703
  2. RUBRACA [Suspect]
     Active Substance: RUCAPARIB CAMSYLATE
     Dosage: 300 MG, BID
     Route: 048
     Dates: start: 20180730, end: 2018
  3. RUBRACA [Suspect]
     Active Substance: RUCAPARIB CAMSYLATE
     Dosage: 300 MG, QD
     Route: 048
     Dates: start: 2018, end: 2018
  4. RUBRACA [Suspect]
     Active Substance: RUCAPARIB CAMSYLATE
     Dosage: 300 MG, BID
     Route: 048
     Dates: start: 20180730
  5. RUBRACA [Suspect]
     Active Substance: RUCAPARIB CAMSYLATE
     Dosage: 600 UNK, UNK
     Route: 048
     Dates: start: 20180505
  6. XARELTO [Concomitant]
     Active Substance: RIVAROXABAN
     Indication: PRODUCT USED FOR UNKNOWN INDICATION
     Dosage: UNK
     Dates: end: 201807
  7. RUBRACA [Suspect]
     Active Substance: RUCAPARIB CAMSYLATE
     Indication: OVARIAN CANCER
     Dosage: 600 MG, BID
     Route: 048
     Dates: start: 20180424, end: 20180427
  8. RUBRACA [Suspect]
     Active Substance: RUCAPARIB CAMSYLATE
     Dosage: 300 MG, BID
     Route: 048
     Dates: start: 20180428, end: 20180703

REACTIONS (32)
  - Neuropathy peripheral [Not Recovered/Not Resolved]
  - Blister [Not Recovered/Not Resolved]
  - Pelvic fluid collection [Unknown]
  - Fatigue [Unknown]
  - Photosensitivity reaction [Not Recovered/Not Resolved]
  - Flatulence [Recovered/Resolved]
  - Eye pain [Unknown]
  - Asthenopia [Unknown]
  - Abdominal distension [Unknown]
  - Anaemia [Not Recovered/Not Resolved]
  - Blood glucose increased [Unknown]
  - Head discomfort [Unknown]
  - Stomatitis [Not Recovered/Not Resolved]
  - Initial insomnia [Recovering/Resolving]
  - Abdominal pain upper [Unknown]
  - Abdominal pain [Unknown]
  - Diarrhoea [Unknown]
  - Skin exfoliation [Recovering/Resolving]
  - Blood cholesterol increased [Not Recovered/Not Resolved]
  - Red blood cell count decreased [Unknown]
  - Cheilitis [Unknown]
  - Nausea [Not Recovered/Not Resolved]
  - Hypersensitivity [Unknown]
  - Erythema [Not Recovered/Not Resolved]
  - Limb discomfort [Not Recovered/Not Resolved]
  - Decreased appetite [Unknown]
  - Somnolence [Unknown]
  - White blood cell count decreased [Unknown]
  - Tongue ulceration [Unknown]
  - Erythema of eyelid [Unknown]
  - Eyelid oedema [Unknown]
  - Dry skin [Recovering/Resolving]

NARRATIVE: CASE EVENT DATE: 2018
